FAERS Safety Report 7371067-6 (Version None)
Quarter: 2011Q1

REPORT INFORMATION
  Report Type: 
  Country: None (occurrence: None)
  Receive Date: 20110318
  Receipt Date: 20110318
  Transmission Date: 20110831
  Serious: Yes (Hospitalization)
  Sender: FDA-Public Use
  Company Number: None

PATIENT
  Sex: Male
  Weight: 71.44 kg

DRUGS (5)
  1. AZITHROMYCIN PACK [Concomitant]
  2. CEFDINIR [Concomitant]
  3. ACIPHEX [Suspect]
     Indication: GASTROOESOPHAGEAL REFLUX DISEASE
     Dosage: 20 MG DAILY PO
     Route: 048
     Dates: start: 20110304, end: 20110311
  4. ACIPHEX [Suspect]
     Indication: SINUSITIS
     Dosage: 20 MG DAILY PO
     Route: 048
     Dates: start: 20110304, end: 20110311
  5. ALBUTEROL [Concomitant]

REACTIONS (3)
  - VOMITING [None]
  - ABDOMINAL PAIN UPPER [None]
  - DISCOMFORT [None]
